FAERS Safety Report 10542005 (Version 1)
Quarter: 2014Q4

REPORT INFORMATION
  Report Type: Spontaneous
  Country: AU (occurrence: AU)
  Receive Date: 20141024
  Receipt Date: 20141024
  Transmission Date: 20150529
  Serious: Yes (Other)
  Sender: FDA-Public Use
  Company Number: AU-ABBVIE-14P-008-1298852-00

PATIENT
  Age: 21 Year
  Sex: Male

DRUGS (1)
  1. EPILIM [Suspect]
     Active Substance: VALPROATE SODIUM
     Indication: EPILEPSY
     Route: 065
     Dates: end: 20141018

REACTIONS (4)
  - Depression [Unknown]
  - Feeling abnormal [Unknown]
  - Increased appetite [Unknown]
  - Suicidal ideation [Unknown]
